FAERS Safety Report 14805654 (Version 9)
Quarter: 2018Q3

REPORT INFORMATION
  Report Type: Report from Study
  Country: US (occurrence: US)
  Receive Date: 20180425
  Receipt Date: 20180904
  Transmission Date: 20181010
  Serious: Yes (Hospitalization)
  Sender: FDA-Public Use
  Company Number: US-MALLINCKRODT-T201801226

PATIENT
  Age: 68 Year
  Sex: Female

DRUGS (9)
  1. REPOSITORY CORTICOTROPIN INJECTION [Suspect]
     Active Substance: CORTICOTROPIN
     Dosage: 80 UNITS / 1 ML, 2 TIMES PER WEEK MONDAY/THURSDAY
     Route: 058
     Dates: end: 2018
  2. PREDNISONE. [Suspect]
     Active Substance: PREDNISONE
     Dosage: 20 MG
     Route: 065
  3. PREDNISONE. [Suspect]
     Active Substance: PREDNISONE
     Dosage: 15 MG
     Route: 065
  4. PREDNISONE. [Suspect]
     Active Substance: PREDNISONE
     Dosage: 5 MG
     Route: 065
  5. PREDNISONE. [Suspect]
     Active Substance: PREDNISONE
     Dosage: 2.5 MG
     Route: 065
     Dates: end: 20180717
  6. REPOSITORY CORTICOTROPIN INJECTION [Suspect]
     Active Substance: CORTICOTROPIN
     Dosage: .05ML
     Dates: start: 20180816
  7. PREDNISONE. [Suspect]
     Active Substance: PREDNISONE
     Indication: PRODUCT USED FOR UNKNOWN INDICATION
     Dosage: UNK
     Route: 065
  8. REPOSITORY CORTICOTROPIN INJECTION [Suspect]
     Active Substance: CORTICOTROPIN
     Dosage: 80 UNITS / 1 ML 2 TIMES PER WEEK MONDAY/THURSDAY
     Route: 058
     Dates: start: 20180409
  9. REPOSITORY CORTICOTROPIN INJECTION [Suspect]
     Active Substance: CORTICOTROPIN
     Indication: DERMATOMYOSITIS
     Dosage: 80 UNITS / 1 ML, 2 TIMES PER WEEK MONDAY/THURSDAY
     Route: 058
     Dates: start: 20180315, end: 2018

REACTIONS (14)
  - Kidney infection [Recovering/Resolving]
  - Nausea [Recovering/Resolving]
  - Drug dose omission [Unknown]
  - Paraesthesia [Recovered/Resolved]
  - Eye swelling [Unknown]
  - Paraesthesia oral [Recovering/Resolving]
  - Blood glucose increased [Unknown]
  - Dyspepsia [Recovering/Resolving]
  - Peripheral swelling [Not Recovered/Not Resolved]
  - Faeces soft [Recovering/Resolving]
  - Pain in extremity [Recovering/Resolving]
  - Weight increased [Not Recovered/Not Resolved]
  - Injection site pain [Unknown]
  - Tremor [Not Recovered/Not Resolved]

NARRATIVE: CASE EVENT DATE: 2018
